FAERS Safety Report 8409127-0 (Version None)
Quarter: 2012Q2

REPORT INFORMATION
  Report Type: 
  Country: None (occurrence: None)
  Receive Date: 20120604
  Receipt Date: 20120530
  Transmission Date: 20120825
  Serious: Yes (Hospitalization)
  Sender: FDA-Public Use
  Company Number: US-ACTELION-A-US2011-50177

PATIENT

DRUGS (4)
  1. DIGOXIN [Concomitant]
  2. OXYGEN [Concomitant]
  3. VENTAVIS [Suspect]
     Indication: PULMONARY ARTERIAL HYPERTENSION
     Dosage: UNK
     Route: 055
     Dates: start: 20111118
  4. TRACLEER [Suspect]
     Indication: PULMONARY ARTERIAL HYPERTENSION
     Dosage: UNK
     Route: 048
     Dates: start: 20110527

REACTIONS (8)
  - CYSTITIS [None]
  - LUNG INFECTION [None]
  - ANXIETY [None]
  - FATIGUE [None]
  - DYSPNOEA [None]
  - PNEUMOTHORAX [None]
  - PNEUMONIA [None]
  - OEDEMA PERIPHERAL [None]
